FAERS Safety Report 17406829 (Version 2)
Quarter: 2021Q1

REPORT INFORMATION
  Report Type: Spontaneous
  Country: US (occurrence: US)
  Receive Date: 20200212
  Receipt Date: 20210311
  Transmission Date: 20210419
  Serious: No
  Sender: FDA-Public Use
  Company Number: US-ALLERGAN-2001264US

PATIENT
  Sex: Female

DRUGS (3)
  1. OTC MEDICATIONS FOR SEASONAL/ENVIRONMENTAL ALLERGIES [Concomitant]
     Indication: SEASONAL ALLERGY
     Dosage: UNK
  2. VIIBRYD [Suspect]
     Active Substance: VILAZODONE HYDROCHLORIDE
     Indication: ANXIETY
  3. VIIBRYD [Suspect]
     Active Substance: VILAZODONE HYDROCHLORIDE
     Indication: DEPRESSION
     Dosage: 40 MG, QD
     Route: 065
     Dates: start: 201909

REACTIONS (1)
  - Off label use [Unknown]
